FAERS Safety Report 6884695-9 (Version None)
Quarter: 2010Q3

REPORT INFORMATION
  Report Type: 
  Country: None (occurrence: None)
  Receive Date: 20100729
  Receipt Date: 20070726
  Transmission Date: 20110219
  Serious: No
  Sender: FDA-Public Use
  Company Number: US-PFIZER INC-2007063899

PATIENT
  Age: 80 Year
  Sex: Female
  Weight: 57 kg

DRUGS (1)
  1. ACCUPRIL [Suspect]
     Indication: BLOOD PRESSURE

REACTIONS (3)
  - ARTHRALGIA [None]
  - ARTHRITIS [None]
  - CYSTITIS [None]
